FAERS Safety Report 21484416 (Version 2)
Quarter: 2024Q2

REPORT INFORMATION
  Report Type: Spontaneous
  Country: FR (occurrence: FR)
  Receive Date: 20221020
  Receipt Date: 20240404
  Transmission Date: 20240716
  Serious: Yes (Death, Other)
  Sender: FDA-Public Use
  Company Number: None

PATIENT
  Age: 16 Year
  Sex: Female

DRUGS (2)
  1. BUSULFAN [Suspect]
     Active Substance: BUSULFAN
     Indication: Ewing^s sarcoma
  2. MELPHALAN [Suspect]
     Active Substance: MELPHALAN
     Indication: Ewing^s sarcoma

REACTIONS (2)
  - Off label use [Unknown]
  - Pulmonary toxicity [Fatal]
